FAERS Safety Report 5392925-8 (Version None)
Quarter: 2007Q3

REPORT INFORMATION
  Report Type: 
  Country: None (occurrence: None)
  Receive Date: 20070718
  Receipt Date: 20070706
  Transmission Date: 20080115
  Serious: Yes (Life-Threatening, Hospitalization)
  Sender: FDA-Public Use
  Company Number: GXKR2007IN05860

PATIENT
  Age: 25 Year
  Sex: Female

DRUGS (5)
  1. VALPROIC ACID [Suspect]
     Indication: SCHIZOPHRENIA, PARANOID TYPE
     Dosage: 22 G, ORAL
     Route: 048
  2. RISPERIDONE [Suspect]
     Indication: SCHIZOPHRENIA, PARANOID TYPE
     Dosage: 88 MG, ORAL
     Route: 048
  3. TRIHEXYPHENIDYL HCL [Suspect]
     Indication: SCHIZOPHRENIA, PARANOID TYPE
     Dosage: 44 MG, ORAL
     Route: 048
  4. CLONAZEPAM [Suspect]
     Indication: SCHIZOPHRENIA, PARANOID TYPE
     Dosage: 66 MG, ORAL
     Route: 048
  5. ZIPRASIDONE HCL [Suspect]
     Indication: SCHIZOPHRENIA, PARANOID TYPE
     Dosage: 880 MG, ORAL
     Route: 048

REACTIONS (14)
  - ATRIAL FIBRILLATION [None]
  - BLOOD PRESSURE DECREASED [None]
  - CREPITATIONS [None]
  - ELECTROCARDIOGRAM ABNORMAL [None]
  - ELECTROCARDIOGRAM QT PROLONGED [None]
  - GLASGOW COMA SCALE ABNORMAL [None]
  - HYPOTONIA [None]
  - HYPOXIA [None]
  - INSOMNIA [None]
  - LOSS OF CONSCIOUSNESS [None]
  - MIOSIS [None]
  - MULTIPLE DRUG OVERDOSE [None]
  - REFLEXES ABNORMAL [None]
  - RESPIRATION ABNORMAL [None]
